FAERS Safety Report 17788530 (Version 3)
Quarter: 2025Q3

REPORT INFORMATION
  Report Type: Report from Study
  Country: CA (occurrence: CA)
  Receive Date: 20200514
  Receipt Date: 20250707
  Transmission Date: 20251021
  Serious: Yes (Other)
  Sender: INCYTE
  Company Number: CA-002147023-NVSC2020CA126609

PATIENT
  Age: 58 Year

DRUGS (1)
  1. RUXOLITINIB [Suspect]
     Active Substance: RUXOLITINIB
     Indication: Graft versus host disease
     Route: 065

REACTIONS (3)
  - Acute myeloid leukaemia [Recovered/Resolved with Sequelae]
  - Product use in unapproved indication [Unknown]
  - Graft versus host disease in skin [Not Recovered/Not Resolved]
